FAERS Safety Report 9438774 (Version 4)
Quarter: 2014Q1

REPORT INFORMATION
  Report Type: Spontaneous
  Country: HU (occurrence: HU)
  Receive Date: 20130802
  Receipt Date: 20140218
  Transmission Date: 20141002
  Serious: Yes (Hospitalization, Other)
  Sender: FDA-Public Use
  Company Number: HU-UCBSA-093304

PATIENT
  Age: 59 Year
  Sex: Male
  Weight: 65 kg

DRUGS (10)
  1. CIMZIA [Suspect]
     Indication: RHEUMATOID ARTHRITIS
     Route: 058
     Dates: start: 20130123, end: 20130704
  2. CIMZIA [Suspect]
     Indication: RHEUMATOID ARTHRITIS
     Route: 058
     Dates: start: 20121212, end: 20130109
  3. TREXAN [Concomitant]
     Indication: RHEUMATOID ARTHRITIS
     Dosage: UNKNOWN
     Route: 048
  4. FOLIC ACID [Concomitant]
     Indication: PROPHYLAXIS
     Dosage: UNKNOWN
     Route: 048
  5. METOPROLOL [Concomitant]
     Indication: PROPHYLAXIS
     Dosage: UNKNOWN
     Route: 048
  6. RIVOTRIL [Concomitant]
     Dosage: UNKNOWN
     Dates: start: 20130709, end: 20130714
  7. AUGMENTIN [Concomitant]
     Indication: TUBULOINTERSTITIAL NEPHRITIS
     Route: 042
     Dates: start: 20130705, end: 20130709
  8. HALOPERIDOL [Concomitant]
     Dosage: UNKNOWN
     Dates: start: 20130709, end: 20130714
  9. FLUCONAZOL [Concomitant]
     Indication: PNEUMONIA
     Dosage: UNKNOWN
     Route: 048
     Dates: start: 20130717, end: 20130726
  10. TAZOCIN [Concomitant]
     Indication: PNEUMONIA
     Dosage: UNKNOWN
     Route: 042
     Dates: start: 20130714, end: 20130726

REACTIONS (2)
  - Tubulointerstitial nephritis [Recovered/Resolved]
  - Psittacosis [Recovered/Resolved]
